FAERS Safety Report 4624258-9 (Version None)
Quarter: 2005Q1

REPORT INFORMATION
  Report Type: 
  Country: None (occurrence: None)
  Receive Date: 20050330
  Receipt Date: 20050330
  Transmission Date: 20050727
  Serious: No
  Sender: FDA-Public Use
  Company Number: None

PATIENT
  Sex: Female
  Weight: 61.73 kg

DRUGS (4)
  1. DOXORUBICIN HCL [Suspect]
     Indication: BREAST CANCER
     Dosage: 24 MG/M2, IV
     Route: 042
     Dates: start: 20040826
  2. CYCLOPHOSPHAMIDE [Suspect]
     Dosage: 60 MG/M2
  3. NEUPOGEN [Suspect]
     Dosage: 5 MCG/KG SQ ON DAYS 2-7 OF EACH WEEK, FOR 15 WEEKS
  4. PACLITAXEL [Suspect]
     Dosage: 80 MG/M2 FOR 12 WEEKS

REACTIONS (6)
  - FLUID OVERLOAD [None]
  - HYPOTENSION [None]
  - LUNG DISORDER [None]
  - NEUTROPENIC SEPSIS [None]
  - ORTHOSTATIC HYPOTENSION [None]
  - POSTERIOR CAPSULE OPACIFICATION [None]
